FAERS Safety Report 9484156 (Version 1)
Quarter: 2013Q3

REPORT INFORMATION
  Report Type: Spontaneous
  Country: US (occurrence: US)
  Receive Date: 20130828
  Receipt Date: 20130828
  Transmission Date: 20140515
  Serious: Yes (Death, Hospitalization)
  Sender: FDA-Public Use
  Company Number: US-AMGEN-KDL385947

PATIENT
  Age: 56 Year
  Sex: Male

DRUGS (2)
  1. PROCRIT [Suspect]
     Indication: RENAL FAILURE CHRONIC
     Dosage: 11000 IU, QWK
     Route: 065
  2. PROCRIT [Suspect]
     Indication: RENAL FAILURE CHRONIC

REACTIONS (2)
  - Death [Fatal]
  - Hospitalisation [Unknown]
